FAERS Safety Report 22235484 (Version 3)
Quarter: 2024Q1

REPORT INFORMATION
  Report Type: Report from Study
  Country: FR (occurrence: FR)
  Receive Date: 20230420
  Receipt Date: 20240104
  Transmission Date: 20240410
  Serious: Yes (Other)
  Sender: FDA-Public Use
  Company Number: FR-ABBVIE-4720944

PATIENT
  Age: 38 Year
  Sex: Female
  Weight: 60 kg

DRUGS (9)
  1. ADALIMUMAB [Suspect]
     Active Substance: ADALIMUMAB\ISOPROPYL ALCOHOL
     Indication: Colitis ulcerative
     Dosage: 40 MG, FREQ:2 WK
     Route: 058
     Dates: start: 20181015, end: 20190217
  2. ADALIMUMAB [Suspect]
     Active Substance: ADALIMUMAB\ISOPROPYL ALCOHOL
     Dosage: 80 MG, FREQ:2 WK
     Route: 058
     Dates: start: 20190218, end: 20200914
  3. ADALIMUMAB [Suspect]
     Active Substance: ADALIMUMAB\ISOPROPYL ALCOHOL
     Dosage: 80 MG, WEEKLY
     Route: 058
     Dates: start: 20200915, end: 20230222
  4. PLAQUENIL [Concomitant]
     Active Substance: HYDROXYCHLOROQUINE SULFATE
     Indication: Arthralgia
     Dosage: 2 DF, 1X/DAY
     Route: 048
     Dates: start: 20220115
  5. ROZEX [RESCINNAMINE] [Concomitant]
     Indication: Rosacea
     Dosage: UNK, DAILY
     Route: 061
     Dates: start: 20190516
  6. DAIVOBET [Concomitant]
     Active Substance: BETAMETHASONE DIPROPIONATE\CALCIPOTRIENE
     Indication: Psoriasis
     Dosage: UNK UNK, 1X/DAY
     Route: 061
     Dates: start: 20190516
  7. CALCIUM CARBONATE [Concomitant]
     Active Substance: CALCIUM CARBONATE
     Indication: Dysphagia
     Dosage: 1 DF, 1X/DAY
     Route: 048
     Dates: start: 20200925
  8. ESOMEPRAZOLE SODIUM [Concomitant]
     Active Substance: ESOMEPRAZOLE SODIUM
     Indication: Dysphagia
     Dosage: 40 MG, FREQ:0.5 D
     Route: 048
     Dates: start: 20200925
  9. STELARA [Concomitant]
     Active Substance: USTEKINUMAB
     Indication: Colitis ulcerative
     Dosage: 90 MG, EVERY 8 WEEKS
     Route: 058
     Dates: start: 20230223

REACTIONS (1)
  - Systemic lupus erythematosus [Recovering/Resolving]

NARRATIVE: CASE EVENT DATE: 20220208
